FAERS Safety Report 7290257-4 (Version None)
Quarter: 2011Q1

REPORT INFORMATION
  Report Type: 
  Country: None (occurrence: None)
  Receive Date: 20110209
  Receipt Date: 20110209
  Transmission Date: 20110831
  Serious: No
  Sender: FDA-Public Use
  Company Number: None

PATIENT
  Age: 63 Year
  Sex: Female
  Weight: 72.5755 kg

DRUGS (1)
  1. NIFEDIPINE [Suspect]
     Dosage: 30MG EVERY DAY
     Dates: start: 20101101, end: 20101201

REACTIONS (5)
  - PRODUCT TASTE ABNORMAL [None]
  - FATIGUE [None]
  - PRODUCT ODOUR ABNORMAL [None]
  - NAUSEA [None]
  - PRODUCT QUALITY ISSUE [None]
